FAERS Safety Report 9099426 (Version 1)
Quarter: 2013Q1

REPORT INFORMATION
  Report Type: Spontaneous
  Country: US (occurrence: US)
  Receive Date: 20130214
  Receipt Date: 20130214
  Transmission Date: 20140127
  Serious: No
  Sender: FDA-Public Use
  Company Number: US-009507513-1302USA006629

PATIENT
  Sex: Male

DRUGS (1)
  1. MEVACOR TABLET [Suspect]
     Route: 048

REACTIONS (2)
  - Myalgia [Unknown]
  - Drug intolerance [Unknown]
